FAERS Safety Report 6669072-8 (Version None)
Quarter: 2010Q2

REPORT INFORMATION
  Report Type: 
  Country: None (occurrence: None)
  Receive Date: 20100402
  Receipt Date: 20100329
  Transmission Date: 20101027
  Serious: Yes (Hospitalization)
  Sender: FDA-Public Use
  Company Number: 232646J10USA

PATIENT
  Age: 51 Year
  Sex: Female
  Weight: 71 kg

DRUGS (8)
  1. REBIF [Suspect]
     Indication: MULTIPLE SCLEROSIS
     Dosage: 8.8 MCG, 3 IN 1 WEEKS, SUBCUTANEOUS
     Route: 058
     Dates: start: 20100225, end: 20100303
  2. BACLOFEN [Concomitant]
  3. FLEXERIL (CYLCOBENZAPRINE HYDROCHLORIDE) [Concomitant]
  4. OMEPRAZOLE [Concomitant]
  5. OXYCODONE HCL [Concomitant]
  6. PREDNISONE TAB [Concomitant]
  7. HYTRIN [Concomitant]
  8. SEROQUEL [Concomitant]

REACTIONS (9)
  - ASPARTATE AMINOTRANSFERASE INCREASED [None]
  - DEHYDRATION [None]
  - HAEMATEMESIS [None]
  - HEADACHE [None]
  - INFLUENZA LIKE ILLNESS [None]
  - LIVER FUNCTION TEST ABNORMAL [None]
  - MYALGIA [None]
  - URINARY TRACT INFECTION [None]
  - WHITE BLOOD CELL COUNT INCREASED [None]
